FAERS Safety Report 13449676 (Version 3)
Quarter: 2017Q3

REPORT INFORMATION
  Report Type: Report from Study
  Country: None (occurrence: FR)
  Receive Date: 20170417
  Receipt Date: 20170907
  Transmission Date: 20171127
  Serious: Yes (Hospitalization)
  Sender: FDA-Public Use
  Company Number: FR-ABBVIE-17P-056-1881494-00

PATIENT
  Age: 28 Year

DRUGS (11)
  1. POTASSIUM (DIFFU K) [Concomitant]
     Indication: PRODUCT USED FOR UNKNOWN INDICATION
     Dosage: DURATION TEXT: 15 DAYS, TO BE RENEWED ONCE
  2. CALCIUM CARBONATE/CHOLECALCIFEROL (CACIT VITAMINE D3) [Concomitant]
     Indication: PRODUCT USED FOR UNKNOWN INDICATION
     Dosage: DOSE TEXT: 800/1000;?DURATION: 15 DAYS, TO BE RENEWED ONCE
  3. MACROGOL 3350 (TRANSIPEG) [Concomitant]
     Indication: PRODUCT USED FOR UNKNOWN INDICATION
     Dosage: 1 TO 2 DF PER DAY?DURATION TEXT: 15 DAYS, TO BE RENEWED ONCE
  4. HUMIRA [Suspect]
     Active Substance: ADALIMUMAB
     Route: 058
     Dates: start: 20170221, end: 20170327
  5. SOLUPRED [Concomitant]
     Active Substance: PREDNISOLONE
     Indication: CROHN^S DISEASE
     Route: 048
     Dates: start: 20170125, end: 20170215
  6. SOLUPRED [Concomitant]
     Active Substance: PREDNISOLONE
     Route: 048
     Dates: start: 20170215
  7. PHLOROGLUCINOL/TRIMETHYLPHLOROGLUCINOL (SPASFON) [Concomitant]
     Indication: PRODUCT USED FOR UNKNOWN INDICATION
     Dosage: 2 DF TID AS NEEDED?DURATION TEXT: 15 DAYS, TO BE RENEWED ONCE
  8. TRAMADOL/PARACETAMOL (IXPRIM) [Concomitant]
     Indication: PRODUCT USED FOR UNKNOWN INDICATION
     Dosage: 1 DF QID AS NEEDED?DURATION TEXT: 15 DAYS, TO BE RENEWED ONCE
  9. DIOSMINE/FLAVONO?DS (DAFLON) [Concomitant]
     Indication: PRODUCT USED FOR UNKNOWN INDICATION
  10. HUMIRA [Suspect]
     Active Substance: ADALIMUMAB
     Indication: CROHN^S DISEASE
     Dosage: LOAD DOSE 160MG
     Route: 058
     Dates: start: 20170207
  11. TRIMEBUTINE/RUSCOGENINES (PROCTOLOG) [Concomitant]
     Indication: PRODUCT USED FOR UNKNOWN INDICATION
     Dosage: 1 APPLICATION AS NEEDED BID ?DURATION TEXT: 15 DAYS, TO BE RENEWED ONCE

REACTIONS (4)
  - Abdominal pain [Unknown]
  - Intestinal obstruction [Unknown]
  - Crohn^s disease [Recovered/Resolved]
  - Abdominal pain [Not Recovered/Not Resolved]

NARRATIVE: CASE EVENT DATE: 20170216
